FAERS Safety Report 12467182 (Version 3)
Quarter: 2016Q3

REPORT INFORMATION
  Report Type: Spontaneous
  Country: US (occurrence: US)
  Receive Date: 20160615
  Receipt Date: 20160811
  Transmission Date: 20161109
  Serious: Yes (Other)
  Sender: FDA-Public Use
  Company Number: US-AUROBINDO-AUR-APU-2016-07465

PATIENT
  Age: 50 Year
  Sex: Male
  Weight: 85.27 kg

DRUGS (7)
  1. GABAPENTIN CAPSULES 100 MG [Suspect]
     Active Substance: GABAPENTIN
     Indication: NECK PAIN
     Dosage: 100 MG TWICE A DAY
     Route: 065
     Dates: start: 20160401, end: 20160423
  2. PANADOL                            /00020001/ [Concomitant]
     Indication: PRODUCT USED FOR UNKNOWN INDICATION
     Route: 065
  3. GABAPENTIN CAPSULES 100 MG [Suspect]
     Active Substance: GABAPENTIN
     Dosage: INCREASE EVERY TWO DAYS BY 100 MG UP TO 800MG/DAY
     Route: 065
  4. AMLODIPINE [Concomitant]
     Active Substance: AMLODIPINE BESYLATE
     Indication: PRODUCT USED FOR UNKNOWN INDICATION
     Route: 065
  5. HYDROCHLOROTHIAZIDE. [Concomitant]
     Active Substance: HYDROCHLOROTHIAZIDE
     Indication: PRODUCT USED FOR UNKNOWN INDICATION
     Route: 065
  6. ANDROGEL [Concomitant]
     Active Substance: TESTOSTERONE
     Indication: PRODUCT USED FOR UNKNOWN INDICATION
     Dosage: 1.62 %, UNK
     Route: 065
  7. LISINOPRIL. [Concomitant]
     Active Substance: LISINOPRIL
     Indication: PRODUCT USED FOR UNKNOWN INDICATION
     Route: 065

REACTIONS (6)
  - Suicidal ideation [Unknown]
  - Abnormal faeces [Unknown]
  - Hallucination [Unknown]
  - Micturition disorder [Unknown]
  - Abnormal behaviour [Unknown]
  - Nightmare [Unknown]

NARRATIVE: CASE EVENT DATE: 20160414
